FAERS Safety Report 9029843 (Version 1)
Quarter: 2013Q1

REPORT INFORMATION
  Report Type: Spontaneous
  Country: US (occurrence: US)
  Receive Date: 20130124
  Receipt Date: 20130124
  Transmission Date: 20140127
  Serious: Yes (Hospitalization)
  Sender: FDA-Public Use
  Company Number: US-ELI_LILLY_AND_COMPANY-US201301004267

PATIENT
  Sex: Female

DRUGS (3)
  1. FORTEO [Suspect]
     Indication: PROMOTION OF WOUND HEALING
     Dosage: 20 UG, QD
     Dates: start: 201203, end: 2012
  2. FORTEO [Suspect]
     Dosage: 20 UG, QD
     Dates: start: 2012
  3. CODEINE [Concomitant]
     Indication: PAIN

REACTIONS (6)
  - Bladder disorder [Unknown]
  - Vaginal disorder [Unknown]
  - Nausea [Unknown]
  - Arthralgia [Unknown]
  - Musculoskeletal pain [Recovering/Resolving]
  - Off label use [Unknown]
